FAERS Safety Report 25261600 (Version 4)
Quarter: 2025Q3

REPORT INFORMATION
  Report Type: Report from Study
  Country: US (occurrence: US)
  Receive Date: 20250502
  Receipt Date: 20250729
  Transmission Date: 20251021
  Serious: No
  Sender: SANDOZ
  Company Number: US-SANDOZ-SDZ2025US026941

PATIENT
  Age: 12 Year
  Sex: Female

DRUGS (1)
  1. HYRIMOZ [Suspect]
     Active Substance: ADALIMUMAB-ADAZ
     Indication: Juvenile idiopathic arthritis
     Dosage: 20 MG, Q2W (20MG/0.2ML)
     Route: 058
     Dates: start: 20250425

REACTIONS (4)
  - Pain in extremity [Unknown]
  - Abdominal pain upper [Unknown]
  - Incorrect dose administered [Unknown]
  - Device issue [Unknown]

NARRATIVE: CASE EVENT DATE: 20250401
